FAERS Safety Report 9814459 (Version 1)
Quarter: 2014Q1

REPORT INFORMATION
  Report Type: Spontaneous
  Country: US (occurrence: US)
  Receive Date: 20140113
  Receipt Date: 20140113
  Transmission Date: 20141002
  Serious: No
  Sender: FDA-Public Use
  Company Number: US-GILEAD-2014-0092051

PATIENT
  Age: 74 Year
  Sex: Female

DRUGS (3)
  1. LETAIRIS [Suspect]
     Indication: PRODUCT USED FOR UNKNOWN INDICATION
     Dosage: 5 MG, UNK
     Route: 065
     Dates: start: 20131129
  2. LASIX                              /00032601/ [Concomitant]
  3. PLAVIX [Concomitant]

REACTIONS (1)
  - Dyspnoea [Not Recovered/Not Resolved]
